FAERS Safety Report 9774136 (Version 1)
Quarter: 2013Q4

REPORT INFORMATION
  Report Type: Report from Study
  Country: AU (occurrence: AU)
  Receive Date: 20131220
  Receipt Date: 20131220
  Transmission Date: 20140711
  Serious: Yes (Death)
  Sender: FDA-Public Use
  Company Number: AU-ROCHE-1318043

PATIENT
  Sex: Male

DRUGS (7)
  1. AVASTIN [Suspect]
     Indication: GLIOBLASTOMA
     Dosage: RECEIVED 9 DOSES
     Route: 065
     Dates: start: 20060608
  2. AVASTIN [Suspect]
     Route: 065
     Dates: start: 20060622
  3. AVASTIN [Suspect]
     Route: 065
     Dates: start: 20060927
  4. TARCEVA [Suspect]
     Indication: PRODUCT USED FOR UNKNOWN INDICATION
     Route: 065
  5. DEXAMETHASONE [Concomitant]
     Dosage: AMP 8
     Route: 065
     Dates: start: 20060609
  6. NAVOBAN [Concomitant]
     Route: 065
     Dates: start: 20060609
  7. NAVOBAN [Concomitant]
     Dosage: 5 MG/ML
     Route: 065
     Dates: start: 20060609

REACTIONS (1)
  - Death [Fatal]
